FAERS Safety Report 6644046-1 (Version None)
Quarter: 2010Q1

REPORT INFORMATION
  Report Type: 
  Country: None (occurrence: None)
  Receive Date: 20100322
  Receipt Date: 20100309
  Transmission Date: 20100710
  Serious: No
  Sender: FDA-Public Use
  Company Number: US-B.I. PHARMACEUTICALS,INC./RIDGEFIELD-2010-BP-02787BP

PATIENT
  Age: 60 Year
  Sex: Female

DRUGS (9)
  1. MICARDIS [Suspect]
     Indication: HYPERTENSION
     Dosage: 80 MG
     Route: 048
     Dates: start: 20070101
  2. ZOCOR [Concomitant]
     Indication: BLOOD CHOLESTEROL INCREASED
  3. LODINE [Concomitant]
     Indication: ARTHRITIS
  4. NEXIUM [Concomitant]
     Indication: DYSPEPSIA
  5. AMBIEN [Concomitant]
     Indication: SLEEP DISORDER
  6. ESTRADIOL [Concomitant]
     Indication: HORMONE REPLACEMENT THERAPY
  7. KLONOPIN [Concomitant]
     Indication: DEPRESSION
  8. SOMA [Concomitant]
     Indication: MUSCLE SPASMS
  9. CYMBALTA [Concomitant]
     Indication: DEPRESSION

REACTIONS (1)
  - ALOPECIA [None]
